FAERS Safety Report 25260009 (Version 4)
Quarter: 2025Q2

REPORT INFORMATION
  Report Type: Report from Study
  Country: BR (occurrence: BR)
  Receive Date: 20250501
  Receipt Date: 20250609
  Transmission Date: 20250716
  Serious: Yes (Other)
  Sender: ABBVIE
  Company Number: BR-JNJFOC-20250433400

PATIENT
  Age: 59 Year
  Sex: Female
  Weight: 96.4 kg

DRUGS (1)
  1. IMBRUVICA [Suspect]
     Active Substance: IBRUTINIB
     Indication: Neoplasm malignant
     Route: 048
     Dates: start: 20230511, end: 20250425

REACTIONS (4)
  - Hypokalaemia [Recovered/Resolved]
  - Respiratory tract infection viral [Recovered/Resolved]
  - Hypomagnesaemia [Recovered/Resolved]
  - Pneumonia bacterial [Recovered/Resolved]

NARRATIVE: CASE EVENT DATE: 20250411
